FAERS Safety Report 11005172 (Version 1)
Quarter: 2015Q2

REPORT INFORMATION
  Report Type: Spontaneous
  Country: TW (occurrence: TW)
  Receive Date: 20150409
  Receipt Date: 20150409
  Transmission Date: 20150821
  Serious: Yes (Hospitalization)
  Sender: FDA-Public Use
  Company Number: PHHY2015TW038885

PATIENT
  Sex: Female
  Weight: 9.6 kg

DRUGS (1)
  1. CURAM [Suspect]
     Active Substance: AMOXICILLIN\CLAVULANATE POTASSIUM
     Indication: OTITIS MEDIA
     Dosage: 1 DF, TID (AROUND 1250 MG ONE TIME WITH FOUR TIMES IN TOTAL)
     Route: 048
     Dates: start: 20150327, end: 20150329

REACTIONS (3)
  - Diarrhoea [Not Recovered/Not Resolved]
  - Overdose [Not Recovered/Not Resolved]
  - Pallor [Not Recovered/Not Resolved]

NARRATIVE: CASE EVENT DATE: 20150328
